FAERS Safety Report 8226998-1 (Version None)
Quarter: 2012Q1

REPORT INFORMATION
  Report Type: 
  Country: None (occurrence: None)
  Receive Date: 20120322
  Receipt Date: 20120316
  Transmission Date: 20120608
  Serious: No
  Sender: FDA-Public Use
  Company Number: US-PFIZER INC-2012071114

PATIENT
  Age: 5 Year
  Sex: Male
  Weight: 13.605 kg

DRUGS (1)
  1. BICILLIN L-A [Suspect]
     Dosage: UNK (A SINGLE INJECTION OF 900,000 UNITS)

REACTIONS (1)
  - EYE INFECTION [None]
